FAERS Safety Report 5739073-2 (Version None)
Quarter: 2008Q2

REPORT INFORMATION
  Report Type: 
  Country: None (occurrence: None)
  Receive Date: 20080515
  Receipt Date: 20080512
  Transmission Date: 20081010
  Serious: Yes (Other)
  Sender: FDA-Public Use
  Company Number: BR-ASTRAZENECA-2008UW08030

PATIENT
  Age: 67 Year
  Sex: Female
  Weight: 48 kg

DRUGS (4)
  1. ARIMIDEX [Suspect]
     Indication: BREAST CANCER FEMALE
     Route: 048
     Dates: start: 20070301, end: 20080201
  2. SINVASTATINA [Concomitant]
     Indication: HYPERCHOLESTEROLAEMIA
     Route: 048
  3. ENALAPRIL MALEATE [Concomitant]
     Indication: HYPERTENSION
     Route: 048
  4. FLUOXETINA [Concomitant]
     Indication: DEPRESSION
     Route: 048

REACTIONS (1)
  - METASTASES TO BONE [None]
